FAERS Safety Report 15797290 (Version 7)
Quarter: 2023Q4

REPORT INFORMATION
  Report Type: Spontaneous
  Country: US (occurrence: US)
  Receive Date: 20190108
  Receipt Date: 20231024
  Transmission Date: 20240110
  Serious: Yes (Hospitalization, Other)
  Sender: FDA-Public Use
  Company Number: US-PFIZER INC-2019004134

PATIENT
  Age: 75 Year
  Sex: Female
  Weight: 68.027 kg

DRUGS (4)
  1. CYTOMEL [Suspect]
     Active Substance: LIOTHYRONINE SODIUM
     Indication: Hypothyroidism
     Dosage: 25 MG, 2X/DAY(TAKES TWO PER DAY; ALL THERE IS NOW IS 25 MICROGRAMS)
     Dates: start: 1970
  2. CYTOMEL [Suspect]
     Active Substance: LIOTHYRONINE SODIUM
     Dosage: UNK
     Dates: start: 1955
  3. CYTOMEL [Suspect]
     Active Substance: LIOTHYRONINE SODIUM
     Dosage: EVERY 6 HOURS (I DIVIDED INTO BOTTLES AND I DIVIDE IT. I TRIED TO TAKE IT EVERY 6 HOURS.)
  4. CYTOMEL [Suspect]
     Active Substance: LIOTHYRONINE SODIUM
     Dosage: UNK
     Dates: start: 1968

REACTIONS (22)
  - Neoplasm malignant [Unknown]
  - Cerebrovascular accident [Unknown]
  - Myxoid liposarcoma [Unknown]
  - Depressed level of consciousness [Unknown]
  - Off label use [Unknown]
  - Maternal exposure during pregnancy [Unknown]
  - Brain fog [Unknown]
  - Weight increased [Unknown]
  - Muscle discomfort [Unknown]
  - Memory impairment [Unknown]
  - Asthenia [Unknown]
  - Hepatic function abnormal [Unknown]
  - Aphasia [Unknown]
  - Fatigue [Unknown]
  - Bradykinesia [Unknown]
  - Hypertension [Unknown]
  - Clumsiness [Unknown]
  - Intentional product use issue [Unknown]
  - Thyroid disorder [Unknown]
  - Feeling of despair [Unknown]
  - Intentional product misuse [Unknown]
  - Wrong technique in product usage process [Unknown]

NARRATIVE: CASE EVENT DATE: 20190101
